FAERS Safety Report 7082548-7 (Version None)
Quarter: 2010Q3

REPORT INFORMATION
  Report Type: 
  Country: None (occurrence: None)
  Receive Date: 20100929
  Receipt Date: 20100614
  Transmission Date: 20110219
  Serious: No
  Sender: FDA-Public Use
  Company Number: US-WYE-H15494110

PATIENT
  Age: 63 Year
  Sex: Female

DRUGS (3)
  1. PRISTIQ [Suspect]
     Dosage: 50 MG 1X PER 1 DAY, ORAL
     Route: 048
     Dates: start: 20100530
  2. XANAX [Suspect]
     Dosage: 1 TABLET 1X PER 1 DAY; 1 TABLET 3X PER 1 DAY
     Dates: end: 20100530
  3. XANAX [Suspect]
     Dosage: 1 TABLET 1X PER 1 DAY; 1 TABLET 3X PER 1 DAY
     Dates: start: 20100531

REACTIONS (12)
  - CRYING [None]
  - DECREASED APPETITE [None]
  - FALL [None]
  - FEELING ABNORMAL [None]
  - GAIT DISTURBANCE [None]
  - HYPERHIDROSIS [None]
  - IMPAIRED DRIVING ABILITY [None]
  - INSOMNIA [None]
  - NERVOUSNESS [None]
  - PALPITATIONS [None]
  - WEIGHT [None]
  - WEIGHT DECREASED [None]
